FAERS Safety Report 9026356 (Version 1)
Quarter: 2012Q4

REPORT INFORMATION
  Report Type: Spontaneous
  Country: US (occurrence: None)
  Receive Date: 20121214
  Receipt Date: 20121214
  Transmission Date: 20130627
  Serious: Yes (Life-Threatening, Hospitalization, Disabling)
  Sender: FDA-Public Use
  Company Number: None

PATIENT
  Age: 44 Year
  Sex: Female
  Weight: 60.33 kg

DRUGS (1)
  1. ORTHO EVRA PATCH [Suspect]
     Indication: BIRTH CONTROL
     Route: 003
     Dates: start: 20030702, end: 20120702

REACTIONS (2)
  - Myocardial infarction [None]
  - Angina pectoris [None]
